FAERS Safety Report 4791462-9 (Version None)
Quarter: 2005Q4

REPORT INFORMATION
  Report Type: 
  Country: None (occurrence: None)
  Receive Date: 20051007
  Receipt Date: 20040721
  Transmission Date: 20060501
  Serious: No
  Sender: FDA-Public Use
  Company Number: US-BRISTOL-MYERS SQUIBB COMPANY-12647368

PATIENT
  Age: 74 Year
  Sex: Male

DRUGS (2)
  1. AVAPRO [Suspect]
     Indication: HYPERTENSION
     Dosage: TAKING FOR 4-5 YEARS
     Route: 048
  2. ZIAC [Concomitant]

REACTIONS (2)
  - CYSTITIS [None]
  - WEIGHT DECREASED [None]
